FAERS Safety Report 4989378-8 (Version None)
Quarter: 2006Q2

REPORT INFORMATION
  Report Type: 
  Country: None (occurrence: None)
  Receive Date: 20060426
  Receipt Date: 20060410
  Transmission Date: 20061013
  Serious: Yes (Hospitalization)
  Sender: FDA-Public Use
  Company Number: USA050495412

PATIENT
  Age: 58 Year
  Sex: Female
  Weight: 88.4 kg

DRUGS (7)
  1. HUMALOG [Suspect]
     Dosage: 30 U, 2/D
     Dates: start: 19980101, end: 20050411
  2. HUMULIN        (HUMAN INSULIN ) [Suspect]
     Dosage: AS NEEDED
     Dates: start: 19930101
  3. HUMULIN 70/30 [Suspect]
     Dosage: 45 U EACH MORNING; 35 U, EACH EVENING
     Dates: start: 19930101
  4. HUMULIN 70/30 [Suspect]
     Dosage: 45 U EACH MORNING; 35 U, EACH EVENING
     Dates: start: 19930101
  5. LANTUS [Concomitant]
  6. BYETTA [Concomitant]
  7. ASPIRIN [Concomitant]

REACTIONS (17)
  - BLOOD CHOLESTEROL INCREASED [None]
  - BLOOD GLUCOSE FLUCTUATION [None]
  - DIABETES MELLITUS INADEQUATE CONTROL [None]
  - DYSPEPSIA [None]
  - FIBROMYALGIA [None]
  - GASTROINTESTINAL DISORDER [None]
  - HAEMATEMESIS [None]
  - HAEMATOCHEZIA [None]
  - HANGOVER [None]
  - HYPOGLYCAEMIA UNAWARENESS [None]
  - MYOCARDIAL INFARCTION [None]
  - PANIC ATTACK [None]
  - PHARMACEUTICAL PRODUCT COMPLAINT [None]
  - POLYMYALGIA RHEUMATICA [None]
  - RASH [None]
  - SOMNOLENCE [None]
  - THYROID DISORDER [None]
